FAERS Safety Report 6919836-8 (Version None)
Quarter: 2010Q3

REPORT INFORMATION
  Report Type: 
  Country: None (occurrence: None)
  Receive Date: 20100810
  Receipt Date: 20100810
  Transmission Date: 20110219
  Serious: Yes (Hospitalization)
  Sender: FDA-Public Use
  Company Number: None

PATIENT
  Sex: Male
  Weight: 76.4 kg

DRUGS (3)
  1. PACLITAXEL [Suspect]
     Indication: LUNG NEOPLASM MALIGNANT
     Dosage: 81 MG WEEKLY X 7 IV
     Route: 042
     Dates: start: 20100622, end: 20100727
  2. CARBOPLATIN [Suspect]
     Indication: LUNG NEOPLASM MALIGNANT
     Dosage: 221 MG WEEKLY X 7 IV
     Route: 042
     Dates: start: 20100622, end: 20100727
  3. RADIATION THERAPY [Concomitant]

REACTIONS (4)
  - DYSPNOEA [None]
  - HYPOXIA [None]
  - RADIATION ASSOCIATED PAIN [None]
  - RADIATION OESOPHAGITIS [None]
